FAERS Safety Report 14589336 (Version 3)
Quarter: 2018Q4

REPORT INFORMATION
  Report Type: Report from Study
  Country: None (occurrence: US)
  Receive Date: 20180302
  Receipt Date: 20181024
  Transmission Date: 20190204
  Serious: Yes (Hospitalization, Other)
  Sender: FDA-Public Use
  Company Number: US-ABBVIE-18K-163-2269234-00

PATIENT
  Age: 34 Year
  Sex: Female
  Weight: 99.43 kg

DRUGS (5)
  1. PROTONIX [Concomitant]
     Active Substance: PANTOPRAZOLE SODIUM
     Indication: GASTROOESOPHAGEAL REFLUX DISEASE
  2. REMERON [Concomitant]
     Active Substance: MIRTAZAPINE
     Indication: SLEEP DISORDER THERAPY
  3. HUMIRA [Suspect]
     Active Substance: ADALIMUMAB
     Indication: HIDRADENITIS
     Route: 058
     Dates: start: 2016
  4. REMERON [Concomitant]
     Active Substance: MIRTAZAPINE
     Indication: ANXIETY
  5. LASIX [Concomitant]
     Active Substance: FUROSEMIDE
     Indication: FLUID RETENTION

REACTIONS (12)
  - Postoperative wound complication [Not Recovered/Not Resolved]
  - Pulmonary oedema [Recovered/Resolved]
  - Tracheostomy [Recovering/Resolving]
  - Gastrostomy [Not Recovered/Not Resolved]
  - Skin infection [Recovered/Resolved]
  - Respiratory failure [Recovering/Resolving]
  - Goitre [Recovered/Resolved]
  - Endocarditis [Recovered/Resolved]
  - Myotonic dystrophy [Not Recovered/Not Resolved]
  - Pneumonia [Recovered/Resolved]
  - Neck surgery [Unknown]
  - Cardiac failure congestive [Recovering/Resolving]

NARRATIVE: CASE EVENT DATE: 20171125
